FAERS Safety Report 6380941-9 (Version None)
Quarter: 2009Q3

REPORT INFORMATION
  Report Type: 
  Country: None (occurrence: None)
  Receive Date: 20090929
  Receipt Date: 20090922
  Transmission Date: 20100115
  Serious: Yes (Other)
  Sender: FDA-Public Use
  Company Number: US-JNJCH-2009025586

PATIENT
  Age: 2 Year
  Sex: Male
  Weight: 16.3 kg

DRUGS (1)
  1. PURELL WITH ALOE [Suspect]
     Indication: PROPHYLAXIS
     Dosage: TEXT:ONE PUMP ONCE
     Route: 061
     Dates: start: 20090921, end: 20090921

REACTIONS (2)
  - CAUSTIC INJURY [None]
  - RASH [None]
